FAERS Safety Report 19162259 (Version 2)
Quarter: 2021Q2

REPORT INFORMATION
  Report Type: Other
  Country: FR (occurrence: FR)
  Receive Date: 20210421
  Receipt Date: 20210602
  Transmission Date: 20210717
  Serious: Yes (Death, Hospitalization)
  Sender: FDA-Public Use
  Company Number: FR-ROCHE-2477942

PATIENT
  Age: 72 Year
  Sex: Male
  Weight: 67 kg

DRUGS (13)
  1. FRAGMINE [Concomitant]
     Active Substance: DALTEPARIN SODIUM
     Indication: PROPHYLAXIS
     Dates: start: 201909, end: 201909
  2. AUGMENTIN [Concomitant]
     Active Substance: AMOXICILLIN\CLAVULANATE POTASSIUM
     Dates: start: 20191004
  3. DIFFU?K [Concomitant]
     Active Substance: POTASSIUM CHLORIDE
     Dates: start: 20190919
  4. TAMSULOSINE [Concomitant]
     Active Substance: TAMSULOSIN HYDROCHLORIDE
     Indication: NOCTURIA
     Dates: start: 20190726
  5. ROCEPHINE [Concomitant]
     Active Substance: CEFTRIAXONE SODIUM
     Dates: start: 20191009
  6. OXYNORM [Concomitant]
     Active Substance: OXYCODONE HYDROCHLORIDE
     Indication: PAIN
  7. DOLIPRANE [Concomitant]
     Active Substance: ACETAMINOPHEN
     Dosage: PRN
     Dates: start: 20190919
  8. LANSOPRAZOLE. [Concomitant]
     Active Substance: LANSOPRAZOLE
     Indication: PROPHYLAXIS
     Dates: start: 20191002
  9. ATEZOLIZUMAB. [Suspect]
     Active Substance: ATEZOLIZUMAB
     Indication: NON-SMALL CELL LUNG CANCER METASTATIC
     Dosage: ON 16/AUG/2019 RECEIVED MOST RECENT DOSE OF ATEZOLIZUMAB 1200 MG
     Route: 041
     Dates: start: 20190726
  10. PERMIXON [Concomitant]
     Active Substance: HERBALS\SAW PALMETTO
     Indication: NOCTURIA
  11. ROVAMYCINE [Concomitant]
     Active Substance: SPIRAMYCIN
     Dates: start: 20191009
  12. AMLOR [Concomitant]
     Active Substance: AMLODIPINE BESYLATE
  13. LEVETIRACETAM. [Concomitant]
     Active Substance: LEVETIRACETAM
     Dates: start: 20191002

REACTIONS (2)
  - Brain neoplasm [Not Recovered/Not Resolved]
  - Steroid diabetes [Unknown]

NARRATIVE: CASE EVENT DATE: 20190909
